FAERS Safety Report 9469838 (Version 1)
Quarter: 2013Q3

REPORT INFORMATION
  Report Type: Spontaneous
  Country: US (occurrence: None)
  Receive Date: 20130820
  Receipt Date: 20130820
  Transmission Date: 20140515
  Serious: No
  Sender: FDA-Public Use
  Company Number: None

PATIENT
  Age: 67 Year
  Sex: Male

DRUGS (1)
  1. XTANDI [Suspect]
     Indication: PROSTATE CANCER
     Route: 048
     Dates: start: 20130614, end: 20130726

REACTIONS (6)
  - Chest pain [None]
  - Local swelling [None]
  - Paraesthesia [None]
  - Pain in extremity [None]
  - Pain in extremity [None]
  - Local swelling [None]
